FAERS Safety Report 7593836-X (Version None)
Quarter: 2011Q3

REPORT INFORMATION
  Report Type: 
  Country: None (occurrence: None)
  Receive Date: 20110706
  Receipt Date: 20110627
  Transmission Date: 20111222
  Serious: Yes (Other)
  Sender: FDA-Public Use
  Company Number: PHHY2011US57750

PATIENT
  Sex: Female

DRUGS (2)
  1. GILENYA [Suspect]
     Dosage: 0.5 MG, QD
     Route: 048
  2. PROPANALOG [Suspect]
     Dosage: UNK UKN, UNK

REACTIONS (2)
  - SWOLLEN TONGUE [None]
  - LIP SWELLING [None]
